FAERS Safety Report 7417826-2 (Version None)
Quarter: 2011Q2

REPORT INFORMATION
  Report Type: 
  Country: None (occurrence: None)
  Receive Date: 20110415
  Receipt Date: 20110404
  Transmission Date: 20111010
  Serious: Yes (Disabling, Other)
  Sender: FDA-Public Use
  Company Number: US-ELI_LILLY_AND_COMPANY-US201104001412

PATIENT
  Sex: Male
  Weight: 106.4 kg

DRUGS (39)
  1. LIPITOR [Concomitant]
  2. XALATAN [Concomitant]
  3. COREG [Concomitant]
     Indication: CARDIAC DISORDER
  4. DIGOXIN [Concomitant]
     Dosage: 1.5 MG, QD
  5. PILOCARPINE [Concomitant]
     Indication: INTRAOCULAR PRESSURE TEST ABNORMAL
  6. DIGOXIN [Concomitant]
     Dosage: 1.5 MG, BID
  7. TIMOLOL [Concomitant]
     Indication: INTRAOCULAR PRESSURE TEST ABNORMAL
  8. GLYBURIDE [Concomitant]
     Indication: DIABETES MELLITUS
  9. METFFORMIN HYDROCHLORIDE [Concomitant]
     Indication: DIABETES MELLITUS
     Dosage: 500 MG, UNK
     Dates: start: 20101018
  10. ZOCOR [Concomitant]
  11. REGLAN [Concomitant]
  12. LOSARTAN [Concomitant]
     Indication: CARDIAC DISORDER
  13. BILBERRY [Concomitant]
     Dosage: 1000 MG, UNK
  14. ADVIL LIQUI-GELS [Concomitant]
     Indication: BACK PAIN
     Dosage: 200 MG, OTHER
     Dates: end: 20110301
  15. LUVOX [Concomitant]
  16. FUROSEMIDE [Concomitant]
     Indication: DIURETIC THERAPY
  17. LUMIGAN [Concomitant]
     Indication: INTRAOCULAR PRESSURE TEST ABNORMAL
     Dosage: UNK, QD
  18. FISH OIL [Concomitant]
  19. LANTUS [Concomitant]
     Indication: DIABETES MELLITUS
     Dosage: 12 IU, QD
  20. PRAVASTATIN [Concomitant]
     Dosage: 40 MG, QD
  21. ZETIA [Concomitant]
  22. OXYCODONE [Concomitant]
     Indication: BACK PAIN
  23. ALLOPURINOL [Concomitant]
     Dosage: 300 MG, QD
  24. THERA TEARS [Concomitant]
  25. DIAZEPAM [Concomitant]
     Dosage: 5 MG, UNK
  26. VICODIN [Concomitant]
  27. TRAMADOL HYDROCHLORIDE [Concomitant]
  28. TOPROL-XL [Concomitant]
  29. PLAVIX [Concomitant]
  30. LOTRIMIN [Concomitant]
  31. CYCLOSPORINE [Concomitant]
  32. ASPIRIN [Concomitant]
     Indication: CARDIAC DISORDER
     Dosage: 50 MG, UNK
  33. POTASSIUM CHLORIDE [Concomitant]
     Dosage: 20 MG, UNK
  34. PROZAC [Suspect]
  35. ALPRAZOLAM [Concomitant]
  36. PROSCAR [Concomitant]
  37. METORPOLOLTARTRAAT A [Concomitant]
     Dosage: 25 MG, BID
  38. CLOZAPINE [Concomitant]
     Dosage: 300 MG, UNK
  39. FOLIC ACID [Concomitant]

REACTIONS (10)
  - DYSPNOEA [None]
  - VOMITING [None]
  - HIP ARTHROPLASTY [None]
  - NAUSEA [None]
  - ASTHENIA [None]
  - SLEEP DISORDER [None]
  - ABASIA [None]
  - BACK PAIN [None]
  - MYALGIA [None]
  - SKIN IRRITATION [None]
